FAERS Safety Report 14342653 (Version 1)
Quarter: 2017Q4

REPORT INFORMATION
  Report Type: Spontaneous
  Country: US (occurrence: US)
  Receive Date: 20171229
  Receipt Date: 20171229
  Transmission Date: 20180321
  Serious: No
  Sender: FDA-Public Use
  Company Number: None

PATIENT
  Age: 49 Year
  Sex: Female

DRUGS (1)
  1. IBRANCE [Suspect]
     Active Substance: PALBOCICLIB
     Indication: PRODUCT USED FOR UNKNOWN INDICATION
     Dosage: 125 MG 21 DAYS OF 28 DAY CYCLE ORAL
     Route: 048
     Dates: start: 20171116

REACTIONS (2)
  - Arthralgia [None]
  - Diarrhoea [None]

NARRATIVE: CASE EVENT DATE: 20171214
